FAERS Safety Report 10329948 (Version 2)
Quarter: 2014Q4

REPORT INFORMATION
  Report Type: Spontaneous
  Country: US (occurrence: US)
  Receive Date: 20140721
  Receipt Date: 20141003
  Transmission Date: 20150528
  Serious: Yes (Death, Hospitalization)
  Sender: FDA-Public Use
  Company Number: US-GLAXOSMITHKLINE-A1081704A

PATIENT
  Age: 40 Year
  Sex: Male
  Weight: 69 kg

DRUGS (1)
  1. VOTRIENT [Suspect]
     Active Substance: PAZOPANIB HYDROCHLORIDE
     Indication: RENAL CANCER
     Dosage: 600MG PER DAY

REACTIONS (15)
  - General physical health deterioration [Unknown]
  - Dysphagia [Unknown]
  - Investigation [Unknown]
  - Haemoglobin decreased [Unknown]
  - Metastases to lung [Fatal]
  - Gastrointestinal tube insertion [Unknown]
  - Hip fracture [Unknown]
  - Disease progression [Unknown]
  - Aspiration [Unknown]
  - Anaplastic meningioma [Fatal]
  - Metastases to meninges [Fatal]
  - Fall [Recovered/Resolved]
  - Lung operation [Unknown]
  - Pneumonia aspiration [Fatal]
  - Pyrexia [Unknown]

NARRATIVE: CASE EVENT DATE: 20140619
